FAERS Safety Report 4713660-2 (Version None)
Quarter: 2005Q3

REPORT INFORMATION
  Report Type: 
  Country: None (occurrence: None)
  Receive Date: 20050712
  Receipt Date: 20050627
  Transmission Date: 20060218
  Serious: No
  Sender: FDA-Public Use
  Company Number: 11716

PATIENT
  Age: 27 Year
  Sex: Male

DRUGS (4)
  1. METHOTREXATE [Suspect]
     Indication: GANGRENE
     Dosage: 15 MG WEEKLY
  2. METHOTREXATE [Suspect]
     Indication: PYODERMA
     Dosage: 15 MG WEEKLY
  3. PREDNISOLONE [Suspect]
     Indication: GANGRENE
  4. PREDNISOLONE [Suspect]
     Indication: PYODERMA

REACTIONS (1)
  - HEPATIC FIBROSIS [None]
